FAERS Safety Report 21624195 (Version 1)
Quarter: 2022Q4

REPORT INFORMATION
  Report Type: Report from Study
  Country: US (occurrence: US)
  Receive Date: 20221121
  Receipt Date: 20221121
  Transmission Date: 20230113
  Serious: Yes (Other)
  Sender: FDA-Public Use
  Company Number: US-GILEAD-2022-0605895

PATIENT
  Sex: Female

DRUGS (1)
  1. IDELALISIB [Suspect]
     Active Substance: IDELALISIB
     Indication: Follicular lymphoma
     Dosage: 150 MG, BID
     Route: 048
     Dates: start: 20170511

REACTIONS (2)
  - Lymphoma [Unknown]
  - Gastric cancer [Recovered/Resolved]
